FAERS Safety Report 7152050 (Version 2)
Quarter: 2014Q2

REPORT INFORMATION
  Report Type: Report from Study
  Country: US (occurrence: US)
  Receive Date: 20091019
  Receipt Date: 20140407
  Transmission Date: 20141212
  Serious: Yes (Other)
  Sender: FDA-Public Use
  Company Number: US-ALEXION-A200900587

PATIENT
  Sex: Female

DRUGS (1)
  1. SOLIRIS [Suspect]
     Indication: PAROXYSMAL NOCTURNAL HAEMOGLOBINURIA
     Dosage: UNK
     Route: 042
     Dates: start: 20090227, end: 20090619

REACTIONS (5)
  - Renal failure [Recovered/Resolved]
  - Renal pain [Unknown]
  - Back pain [Unknown]
  - Dizziness [Unknown]
  - Headache [Unknown]
